FAERS Safety Report 21335766 (Version 2)
Quarter: 2023Q4

REPORT INFORMATION
  Report Type: Spontaneous
  Country: US (occurrence: US)
  Receive Date: 20220915
  Receipt Date: 20231204
  Transmission Date: 20240109
  Serious: No
  Sender: FDA-Public Use
  Company Number: US-BAUSCHBL-2022BNL000131

PATIENT
  Age: 71 Year
  Sex: Female

DRUGS (3)
  1. LUMIFY [Suspect]
     Active Substance: BRIMONIDINE TARTRATE
     Indication: Product used for unknown indication
     Route: 047
     Dates: start: 20220909, end: 20220909
  2. LUMIFY [Suspect]
     Active Substance: BRIMONIDINE TARTRATE
  3. ROGAINE [Concomitant]
     Active Substance: MINOXIDIL
     Indication: Product used for unknown indication
     Route: 065

REACTIONS (1)
  - Scleral discolouration [Recovered/Resolved]
